FAERS Safety Report 6340936-8 (Version None)
Quarter: 2009Q3

REPORT INFORMATION
  Report Type: 
  Country: None (occurrence: None)
  Receive Date: 20090904
  Receipt Date: 20090826
  Transmission Date: 20100115
  Serious: Yes (Hospitalization)
  Sender: FDA-Public Use
  Company Number: JP-JNJFOC-20090709774

PATIENT
  Sex: Female

DRUGS (23)
  1. BLINDED; GOLIMUMA [Suspect]
     Route: 058
  2. BLINDED; GOLIMUMA [Suspect]
     Route: 058
  3. BLINDED; GOLIMUMA [Suspect]
     Route: 058
  4. BLINDED; GOLIMUMA [Suspect]
     Route: 058
  5. BLINDED; GOLIMUMA [Suspect]
     Route: 058
  6. BLINDED; GOLIMUMA [Suspect]
     Route: 058
  7. BLINDED; GOLIMUMA [Suspect]
     Route: 058
  8. BLINDED; GOLIMUMA [Suspect]
     Route: 058
  9. BLINDED; GOLIMUMA [Suspect]
     Indication: RHEUMATOID ARTHRITIS
     Route: 058
  10. PLACEBO [Suspect]
     Route: 058
  11. PLACEBO [Suspect]
     Route: 058
  12. PLACEBO [Suspect]
     Route: 058
  13. PLACEBO [Suspect]
     Route: 058
  14. PLACEBO [Suspect]
     Route: 058
  15. PLACEBO [Suspect]
     Route: 058
  16. PLACEBO [Suspect]
     Route: 058
  17. PLACEBO [Suspect]
     Route: 058
  18. PLACEBO [Suspect]
     Indication: RHEUMATOID ARTHRITIS
     Route: 058
  19. METHOTREXATE [Suspect]
     Indication: RHEUMATOID ARTHRITIS
     Route: 048
  20. PREDNISOLONE [Suspect]
     Indication: RHEUMATOID ARTHRITIS
     Route: 048
  21. MUCOSTA [Concomitant]
     Indication: GASTRITIS PROPHYLAXIS
     Route: 048
  22. FOLIAMIN [Concomitant]
     Indication: RHEUMATOID ARTHRITIS
     Route: 048
  23. FLUTIDE [Concomitant]
     Indication: ASTHMA
     Route: 055

REACTIONS (1)
  - URINARY TRACT INFECTION [None]
